FAERS Safety Report 9448362 (Version 2)
Quarter: 2013Q3

REPORT INFORMATION
  Report Type: Spontaneous
  Country: US (occurrence: US)
  Receive Date: 20130808
  Receipt Date: 20130820
  Transmission Date: 20140515
  Serious: Yes (Hospitalization)
  Sender: FDA-Public Use
  Company Number: US-PFIZER INC-2013226604

PATIENT
  Age: 77 Year
  Sex: Female

DRUGS (1)
  1. PREMARIN [Suspect]
     Dosage: 0.625 MG, 1X/DAY
     Route: 048

REACTIONS (2)
  - Urinary tract infection [Unknown]
  - Tuberculosis [Unknown]
